FAERS Safety Report 6079619-0 (Version None)
Quarter: 2009Q1

REPORT INFORMATION
  Report Type: 
  Country: None (occurrence: None)
  Receive Date: 20090217
  Receipt Date: 20090206
  Transmission Date: 20090719
  Serious: Yes (Other)
  Sender: FDA-Public Use
  Company Number: AR-JNJFOC-20090202605

PATIENT
  Sex: Female

DRUGS (1)
  1. IBUPIRAC 600 [Suspect]
     Indication: DRUG USE FOR UNKNOWN INDICATION
     Dosage: TOOK TOTAL OF 9 TABLETS AT RECOMMENDED INTERVAL (NOT SPECIFIED)
     Route: 048

REACTIONS (2)
  - DRUG INEFFECTIVE [None]
  - PRODUCT COUNTERFEIT [None]
